FAERS Safety Report 4311689-X (Version None)
Quarter: 2004Q1

REPORT INFORMATION
  Report Type: 
  Country: None (occurrence: None)
  Receive Date: 20040303
  Receipt Date: 20040303
  Transmission Date: 20041129
  Serious: Yes (Disabling)
  Sender: FDA-Public Use
  Company Number: None

PATIENT
  Age: 89 Year
  Sex: Female
  Weight: 49.8957 kg

DRUGS (13)
  1. LEXAPRO [Suspect]
     Indication: DEPRESSION
     Dosage: Q DAY
     Dates: start: 20040115, end: 20040212
  2. TUMS [Concomitant]
  3. COLACE [Concomitant]
  4. SINEMET [Concomitant]
  5. VIT B12 [Concomitant]
  6. RISPERDAL [Concomitant]
  7. ENALAPRIL MALEATE [Concomitant]
  8. PERCOCET [Concomitant]
  9. KCL TAB [Concomitant]
  10. MAXZIDE [Concomitant]
  11. CELEBREX [Concomitant]
  12. NITROGLYCERIN [Concomitant]
  13. FERROUS SULFATE TAB [Concomitant]

REACTIONS (1)
  - URINARY RETENTION [None]
